FAERS Safety Report 8064292-2 (Version None)
Quarter: 2011Q4

REPORT INFORMATION
  Report Type: 
  Country: None (occurrence: None)
  Receive Date: 20111221
  Receipt Date: 20110531
  Transmission Date: 20120403
  Serious: Yes (Other)
  Sender: FDA-Public Use
  Company Number: PHHY2011US32985

PATIENT
  Age: 81 Year
  Sex: Male
  Weight: 77.6 kg

DRUGS (5)
  1. ISMO [Concomitant]
  2. ANAGRELIDE HCL [Concomitant]
  3. EXJADE [Suspect]
     Indication: MYELODYSPLASTIC SYNDROME
     Dosage: 2000MG, QD, ORAL
     Route: 048
     Dates: start: 20101116, end: 20110414
  4. HYDREA [Concomitant]
  5. CARVEDIOL (CARVEDIOL) [Concomitant]

REACTIONS (1)
  - RENAL FAILURE [None]
